FAERS Safety Report 9097711 (Version 1)
Quarter: 2013Q1

REPORT INFORMATION
  Report Type: Spontaneous
  Country: BR (occurrence: BR)
  Receive Date: 20130212
  Receipt Date: 20130212
  Transmission Date: 20140127
  Serious: Yes (Other)
  Sender: FDA-Public Use
  Company Number: PHHY2012BR079268

PATIENT
  Sex: Female

DRUGS (11)
  1. RASILEZ [Suspect]
     Indication: HYPERTENSION
     Dosage: 1 DF, A DAY
  2. SYNTHROID [Concomitant]
     Indication: HYPOTHYROIDISM
     Dosage: 1 DF (TABLET) A DAY
     Route: 048
  3. OMEPRAZOLE [Concomitant]
     Indication: ABDOMINAL DISCOMFORT
     Dosage: 1 DF (TABLET) A DAY
     Route: 048
  4. ALDACTONE [Concomitant]
     Indication: MEDICAL DEVICE COMPLICATION
     Dosage: 1 DF (TABLET) A DAY
     Route: 048
     Dates: start: 2010
  5. CARVEDILOL [Concomitant]
     Indication: MEDICAL DEVICE COMPLICATION
     Dosage: 1 DF (TABLET) A DAY
     Route: 048
     Dates: start: 2010
  6. CARVEDILOL [Concomitant]
     Dosage: 1 DF (25MG TABLET) A DAY
     Route: 048
     Dates: start: 2010
  7. NATRILIX [Concomitant]
     Dosage: 1 DF (TABLET) A DAY
     Route: 048
  8. VYTORIN [Concomitant]
     Indication: CARDIAC DISORDER
     Dosage: 1 DF (TABLET) A DAY
     Route: 048
  9. LISADOR [Concomitant]
     Indication: PAIN
     Dosage: 2 DF (TABLET) A DAY
     Route: 048
     Dates: start: 2010
  10. RIVOTRIL [Concomitant]
     Indication: ANXIETY
     Dosage: 2 DF (TABLET) A DAY
     Route: 048
  11. OXALATE [Concomitant]
     Indication: ANXIETY
     Dosage: 1 DF (TABLET) A DAY
     Route: 048

REACTIONS (5)
  - Pain in extremity [Not Recovered/Not Resolved]
  - Hypertension [Recovered/Resolved]
  - Feeling abnormal [Recovered/Resolved]
  - Weight decreased [Recovered/Resolved]
  - Malaise [Recovered/Resolved]
